FAERS Safety Report 9494965 (Version 1)
Quarter: 2013Q3

REPORT INFORMATION
  Report Type: Spontaneous
  Country: US (occurrence: None)
  Receive Date: 20130830
  Receipt Date: 20130830
  Transmission Date: 20140515
  Serious: Yes (Other)
  Sender: FDA-Public Use
  Company Number: None

PATIENT
  Age: 9 Year
  Sex: Male

DRUGS (1)
  1. DERMASMOOTH BODY OIL [Suspect]
     Dosage: APPLY TO BODY NIGHTLY

REACTIONS (1)
  - Burning sensation [None]
